FAERS Safety Report 7315152-3 (Version None)
Quarter: 2011Q1

REPORT INFORMATION
  Report Type: 
  Country: None (occurrence: None)
  Receive Date: 20110225
  Receipt Date: 20110118
  Transmission Date: 20110831
  Serious: Yes (Other)
  Sender: FDA-Public Use
  Company Number: NL-PFIZER INC-2011012821

PATIENT
  Age: 49 Year
  Sex: Female
  Weight: 113 kg

DRUGS (1)
  1. AROMASIN [Suspect]
     Indication: BREAST CANCER FEMALE
     Dosage: 25 MG, 1X/DAY
     Dates: start: 20101215, end: 20101216

REACTIONS (2)
  - CHEST DISCOMFORT [None]
  - DYSPNOEA [None]
